FAERS Safety Report 9721555 (Version 1)
Quarter: 2013Q4

REPORT INFORMATION
  Report Type: Report from Study
  Country: CA (occurrence: CA)
  Receive Date: 20131130
  Receipt Date: 20131130
  Transmission Date: 20140711
  Serious: Yes (Hospitalization)
  Sender: FDA-Public Use
  Company Number: PHHY2013CA138703

PATIENT
  Age: 71 Year
  Sex: Female

DRUGS (12)
  1. ACLASTA [Suspect]
     Indication: OSTEOPOROSIS
     Dosage: 5 MG, UNK
     Route: 042
     Dates: start: 20091127
  2. ACLASTA [Suspect]
     Dosage: 5 MG, UNK
     Route: 042
     Dates: start: 20101124
  3. ACLASTA [Suspect]
     Dosage: 5 MG, UNK
     Route: 042
     Dates: start: 20111207
  4. ACLASTA [Suspect]
     Dosage: 5 MG, UNK
     Route: 042
     Dates: start: 20121212
  5. ZANTAC [Concomitant]
     Dosage: UNK UKN, UNK
  6. PANTOLOC [Concomitant]
     Dosage: UNK UKN, UNK
  7. EMTEC [Concomitant]
     Dosage: UNK UKN, UNK
  8. VITAMIN D [Concomitant]
     Dosage: UNK UKN, UNK
  9. CALCIUM [Concomitant]
     Dosage: UNK UKN, UNK
  10. CO Q-10 [Concomitant]
     Dosage: UNK UKN, UNK
  11. VITAMIN B12 [Concomitant]
     Dosage: UNK UKN, UNK
  12. ACIDOPHILUS [Concomitant]
     Dosage: UNK UKN, UNK

REACTIONS (1)
  - Pneumonia [Unknown]
